FAERS Safety Report 9414435 (Version 1)
Quarter: 2013Q3

REPORT INFORMATION
  Report Type: Spontaneous
  Country: US (occurrence: US)
  Receive Date: 20130723
  Receipt Date: 20130723
  Transmission Date: 20140515
  Serious: No
  Sender: FDA-Public Use
  Company Number: US-B.I. PHARMACEUTICALS,INC./RIDGEFIELD-2013-BI-21211BP

PATIENT
  Age: 73 Year
  Sex: Female

DRUGS (4)
  1. SPIRIVA [Suspect]
     Indication: CHRONIC OBSTRUCTIVE PULMONARY DISEASE
     Dosage: 18 MCG
     Route: 055
     Dates: start: 20130621, end: 20130627
  2. COREG [Concomitant]
     Indication: HYPERTENSION
     Dosage: 25 MG
     Route: 048
     Dates: start: 2009
  3. LORTAB [Concomitant]
     Indication: ARTHRITIS
     Dates: start: 2009
  4. NIFEDEPINE [Concomitant]
     Indication: HYPERTENSION
     Dosage: 30 MG
     Route: 048
     Dates: start: 20130717

REACTIONS (1)
  - Dyspnoea [Recovered/Resolved]
